FAERS Safety Report 8267594-X (Version None)
Quarter: 2012Q2

REPORT INFORMATION
  Report Type: 
  Country: None (occurrence: None)
  Receive Date: 20120409
  Receipt Date: 20120327
  Transmission Date: 20120825
  Serious: Yes (Other)
  Sender: FDA-Public Use
  Company Number: JP-ELI_LILLY_AND_COMPANY-JP201203007126

PATIENT
  Age: 29 Year
  Sex: Male

DRUGS (8)
  1. NITRAZEPAM [Concomitant]
     Indication: SLEEP DISORDER
     Dosage: UNK UNK, PRN
     Route: 048
  2. STRATTERA [Suspect]
     Dosage: UNK
     Route: 048
     Dates: start: 20111207
  3. STRATTERA [Suspect]
     Dosage: UNK
     Route: 048
     Dates: start: 20120201
  4. PHENOBARBITAL TAB [Concomitant]
     Indication: SLEEP DISORDER
     Dosage: UNK
     Route: 048
  5. STRATTERA [Suspect]
     Indication: ATTENTION DEFICIT/HYPERACTIVITY DISORDER
     Dosage: UNK
     Route: 048
     Dates: start: 20111019
  6. LENDORMIN [Concomitant]
     Indication: SLEEP DISORDER
     Dosage: UNK
     Route: 048
  7. DEPAS [Concomitant]
     Indication: SLEEP DISORDER
     Dosage: UNK
     Route: 048
  8. ROHYPNOL [Concomitant]
     Indication: SLEEP DISORDER
     Dosage: UNK
     Route: 048

REACTIONS (3)
  - ROAD TRAFFIC ACCIDENT [None]
  - STUPOR [None]
  - OFF LABEL USE [None]
